FAERS Safety Report 5904626-5 (Version None)
Quarter: 2008Q4

REPORT INFORMATION
  Report Type: 
  Country: None (occurrence: None)
  Receive Date: 20081001
  Receipt Date: 20080922
  Transmission Date: 20090506
  Serious: Yes (Hospitalization)
  Sender: FDA-Public Use
  Company Number: US-ELI_LILLY_AND_COMPANY-US200808005939

PATIENT
  Age: 75 Year
  Sex: Male
  Weight: 87.982 kg

DRUGS (12)
  1. ALIMTA [Suspect]
     Indication: LUNG CARCINOMA CELL TYPE UNSPECIFIED STAGE IV
     Dosage: OTHER; 3 DOSES
     Dates: start: 20080728
  2. VITAMIN B-12 [Concomitant]
     Dosage: 1000 MG, UNK
     Route: 030
     Dates: start: 20080717
  3. FOLIC ACID [Concomitant]
     Dosage: 1 MG, UNK
     Route: 048
     Dates: start: 20080717
  4. CORTICOSTEROIDS [Concomitant]
     Dosage: 8 MG, UNK
     Route: 048
     Dates: start: 20080727
  5. ALBUTEROL [Concomitant]
     Route: 055
  6. BENZONATATE [Concomitant]
  7. DEXAMETHASONE [Concomitant]
  8. FUROSEMIDE [Concomitant]
  9. HYDROCODONE BITARTRATE [Concomitant]
  10. METOPROLOL TARTRATE [Concomitant]
  11. ONDANSETRON [Concomitant]
  12. OXYCODONE HCL [Concomitant]

REACTIONS (2)
  - GOUT [None]
  - PYREXIA [None]
